FAERS Safety Report 9467785 (Version 2)
Quarter: 2013Q3

REPORT INFORMATION
  Report Type: Spontaneous
  Country: US (occurrence: US)
  Receive Date: 20130821
  Receipt Date: 20130920
  Transmission Date: 20140515
  Serious: Yes (Death)
  Sender: FDA-Public Use
  Company Number: US-JNJFOC-20130807267

PATIENT
  Sex: Female
  Weight: 106.6 kg

DRUGS (13)
  1. STELARA [Suspect]
     Indication: PSORIASIS
     Dosage: /0.8ML
     Route: 058
     Dates: start: 20130621, end: 20130621
  2. KENALOG [Concomitant]
  3. TACLONEX [Concomitant]
     Dosage: EVERY HOUR OF SLEEP
     Route: 065
  4. ZIAC [Concomitant]
     Dosage: 10-6
     Route: 048
  5. AMLODIPINE [Concomitant]
     Route: 048
  6. ENBREL [Concomitant]
     Indication: PSORIASIS
     Dosage: FOR 3 MONTHS
     Route: 065
  7. ENBREL [Concomitant]
     Indication: PSORIASIS
     Route: 065
  8. ENBREL [Concomitant]
     Indication: PSORIASIS
     Route: 065
     Dates: start: 201302
  9. ADENOSINE [Concomitant]
     Indication: CARDIAC STRESS TEST
     Route: 065
  10. HUMIRA [Concomitant]
     Route: 065
  11. ADVIL [Concomitant]
     Dosage: EVERY 4-6 HOURS, AS NECESSARY
     Route: 065
  12. OLUX [Concomitant]
     Dosage: STREANGTH: 0.05 %
     Route: 061
  13. CLOBEX [Concomitant]
     Route: 065

REACTIONS (1)
  - Death [Fatal]
